FAERS Safety Report 7367338-X (Version None)
Quarter: 2011Q1

REPORT INFORMATION
  Report Type: 
  Country: None (occurrence: None)
  Receive Date: 20110321
  Receipt Date: 20110321
  Transmission Date: 20110831
  Serious: Yes (Hospitalization, Other)
  Sender: FDA-Public Use
  Company Number: None

PATIENT
  Age: 54 Year
  Sex: Female
  Weight: 65.7716 kg

DRUGS (1)
  1. TRIAD ALCHOL PREP PAD GROUP COMPANY [Suspect]
     Dosage: 1 PER PACKET 2 PER WEEK

REACTIONS (5)
  - BLISTER [None]
  - HERPES ZOSTER [None]
  - MOUTH ULCERATION [None]
  - PRODUCT QUALITY ISSUE [None]
  - MALAISE [None]
